FAERS Safety Report 24439881 (Version 1)
Quarter: 2024Q4

REPORT INFORMATION
  Report Type: Spontaneous
  Country: JP (occurrence: JP)
  Receive Date: 20241015
  Receipt Date: 20241015
  Transmission Date: 20250115
  Serious: Yes (Death, Hospitalization)
  Sender: DAIICHI
  Company Number: JP-DSJP-DS-2024-100103-JP

PATIENT
  Age: 61 Year
  Sex: Male
  Weight: 50 kg

DRUGS (14)
  1. PRASUGREL HYDROCHLORIDE [Interacting]
     Active Substance: PRASUGREL HYDROCHLORIDE
     Indication: Lacunar infarction
     Dosage: 3.75 MG, QD
     Route: 048
     Dates: start: 20211004
  2. PRASUGREL HYDROCHLORIDE [Interacting]
     Active Substance: PRASUGREL HYDROCHLORIDE
     Indication: Angina pectoris
  3. EDOXABAN TOSYLATE [Interacting]
     Active Substance: EDOXABAN TOSYLATE
     Indication: Atrial fibrillation
     Dosage: 30 MG, QD
     Route: 048
     Dates: start: 202109
  4. ASPIRIN [Interacting]
     Active Substance: ASPIRIN
     Indication: Lacunar infarction
     Dosage: 100 MG, QD
     Route: 048
  5. ASPIRIN [Interacting]
     Active Substance: ASPIRIN
     Indication: Angina pectoris
  6. FEBUXOSTAT [Concomitant]
     Active Substance: FEBUXOSTAT
     Indication: Hyperuricaemia
     Dosage: 20 MG, QD
     Route: 048
  7. BISOPROLOL FUMARATE [Concomitant]
     Active Substance: BISOPROLOL FUMARATE
     Indication: Cardiac failure chronic
     Dosage: 2.5 MG, QD
     Route: 048
  8. DAPAGLIFLOZIN [Concomitant]
     Active Substance: DAPAGLIFLOZIN
     Indication: Cardiac failure chronic
     Dosage: 10 MG, QD
     Route: 048
     Dates: start: 20210927
  9. SPIRONOLACTONE [Concomitant]
     Active Substance: SPIRONOLACTONE
     Indication: Cardiac failure chronic
     Dosage: 25 MG, QD
     Route: 048
  10. NEXIUM I.V. [Concomitant]
     Active Substance: ESOMEPRAZOLE SODIUM
     Indication: Gastrooesophageal reflux disease
     Dosage: 20 MG, QD
     Route: 048
     Dates: start: 20210929
  11. LEVOTHYROXINE SODIUM [Concomitant]
     Active Substance: LEVOTHYROXINE SODIUM
     Indication: Hypothyroidism
     Dosage: 12.5 UG, QD
     Route: 048
     Dates: start: 20211014
  12. ROSUVASTATIN CALCIUM [Concomitant]
     Active Substance: ROSUVASTATIN CALCIUM
     Indication: Lacunar infarction
     Dosage: 2.5 MG, QD
     Route: 048
     Dates: start: 20211108
  13. LEVOCETIRIZINE HYDROCHLORIDE [Concomitant]
     Active Substance: LEVOCETIRIZINE HYDROCHLORIDE
     Indication: Rhinitis allergic
     Dosage: 5 MG, QD
     Route: 048
     Dates: start: 20210921
  14. ENTRESTO [Concomitant]
     Active Substance: SACUBITRIL\VALSARTAN
     Indication: Cardiac failure chronic
     Dosage: 50 MG, QD
     Route: 048
     Dates: start: 20210928

REACTIONS (2)
  - Gastrointestinal haemorrhage [Fatal]
  - Drug interaction [Fatal]

NARRATIVE: CASE EVENT DATE: 20211128
